FAERS Safety Report 19398737 (Version 2)
Quarter: 2021Q2

REPORT INFORMATION
  Report Type: Spontaneous
  Country: US (occurrence: US)
  Receive Date: 20210610
  Receipt Date: 20210625
  Transmission Date: 20210717
  Serious: Yes (Other)
  Sender: FDA-Public Use
  Company Number: US-AUROBINDO-AUR-APL-2021-023799

PATIENT
  Age: 70 Year
  Sex: Female

DRUGS (19)
  1. INSULIN LISPRO [Concomitant]
     Active Substance: INSULIN LISPRO
     Dosage: 3 INTERNATIONAL UNIT
     Route: 065
  2. INSULIN DETEMIR [Concomitant]
     Active Substance: INSULIN DETEMIR
     Dosage: 50 INTERNATIONAL UNIT, ONCE A DAY (DECREASED TO 50 UNITS IN THE AM)
     Route: 065
  3. DEXAMETHASONE. [Suspect]
     Active Substance: DEXAMETHASONE
     Dosage: 12 MILLIGRAM
     Route: 042
  4. GEMCITABINE. [Concomitant]
     Active Substance: GEMCITABINE
     Indication: PANCREATIC CARCINOMA METASTATIC
     Dosage: 2200 MILLIGRAM
     Route: 042
  5. PACLITAXEL. [Concomitant]
     Active Substance: PACLITAXEL
     Indication: PANCREATIC CARCINOMA METASTATIC
     Dosage: 220 MILLIGRAM
     Route: 042
  6. INSULIN LISPRO [Concomitant]
     Active Substance: INSULIN LISPRO
     Dosage: 17 INTERNATIONAL UNIT (15 UNITS WITH AN ADDITIONAL 2 UNITS)
     Route: 065
  7. INSULIN LISPRO [Concomitant]
     Active Substance: INSULIN LISPRO
     Indication: TYPE 2 DIABETES MELLITUS
     Dosage: 5 INTERNATIONAL UNIT
     Route: 065
  8. INSULIN DETEMIR [Concomitant]
     Active Substance: INSULIN DETEMIR
     Dosage: 30 INTERNATIONAL UNIT, ONCE A DAY (DECREASED TO 30 UNITS IN THE PM)
     Route: 065
  9. PIOGLITAZONE. [Concomitant]
     Active Substance: PIOGLITAZONE
     Indication: TYPE 2 DIABETES MELLITUS
     Dosage: 15 MILLIGRAM, ONCE A DAY
     Route: 065
  10. INSULIN LISPRO [Concomitant]
     Active Substance: INSULIN LISPRO
     Dosage: 2 INTERNATIONAL UNIT (INCREASED TO 15 UNITS WITH AN ADDITIONAL 2 UNITS FOR EVERY 50 MG/DL GLUCOSE)
     Route: 065
  11. INSULIN DETEMIR [Concomitant]
     Active Substance: INSULIN DETEMIR
     Dosage: 30 INTERNATIONAL UNIT, ON THE CHEMOTHERAPY DAY
     Route: 065
  12. INSULIN DETEMIR [Concomitant]
     Active Substance: INSULIN DETEMIR
     Dosage: 40 INTERNATIONAL UNIT, ONCE A DAY (40 UNITS ON THE FOLLOWING NIGHT)
     Route: 065
  13. INSULIN DETEMIR [Concomitant]
     Active Substance: INSULIN DETEMIR
     Dosage: 45 UNITS ON THE CHEMOTHERAPY DAY AND 40 UNITS ON THE FOLLOW NIGHT
     Route: 065
  14. INSULIN DETEMIR [Concomitant]
     Active Substance: INSULIN DETEMIR
     Dosage: 50 INTERNATIONAL UNIT, TWO TIMES A DAY
     Route: 065
  15. FLUOROURACIL. [Concomitant]
     Active Substance: FLUOROURACIL
     Indication: PANCREATIC CARCINOMA METASTATIC
     Dosage: 2700 MILLIGRAM
     Route: 065
  16. INSULIN LISPRO [Concomitant]
     Active Substance: INSULIN LISPRO
     Dosage: 15 INTERNATIONAL UNIT
     Route: 065
  17. INSULIN DETEMIR [Concomitant]
     Active Substance: INSULIN DETEMIR
     Dosage: 40 INTERNATIONAL UNIT, ONCE A DAY (40 UNITS AT NIGHT)
     Route: 065
  18. DEXAMETHASONE. [Suspect]
     Active Substance: DEXAMETHASONE
     Indication: PANCREATIC CARCINOMA METASTATIC
     Dosage: 8 MILLIGRAM (ON EVERY OTHER WEDNESDAY)
     Route: 042
  19. INSULIN DETEMIR [Concomitant]
     Active Substance: INSULIN DETEMIR
     Indication: TYPE 2 DIABETES MELLITUS
     Dosage: 90 INTERNATIONAL UNIT (50 UNITS IN THE MORNING AND 40 UNITS AT NIGHT)
     Route: 065

REACTIONS (1)
  - Hyperglycaemia [Recovered/Resolved]
